FAERS Safety Report 4837734-0 (Version None)
Quarter: 2005Q4

REPORT INFORMATION
  Report Type: 
  Country: None (occurrence: None)
  Receive Date: 20051128
  Receipt Date: 20050722
  Transmission Date: 20060501
  Serious: Yes (Hospitalization, Other)
  Sender: FDA-Public Use
  Company Number: 200516656GDDC

PATIENT
  Age: 64 Year
  Sex: Male
  Weight: 86 kg

DRUGS (7)
  1. DOCETAXEL [Suspect]
     Indication: PROSTATE CANCER
     Route: 042
     Dates: start: 20041221, end: 20050629
  2. ENOXAPARIN SODIUM [Concomitant]
     Dates: start: 20041222
  3. HYDROCORTISONE [Concomitant]
     Dates: start: 20050421
  4. METOPROLOL [Concomitant]
     Dates: start: 20040604
  5. PROPAFENON [Concomitant]
     Dates: start: 20050202
  6. OMEPRAZOLE [Concomitant]
     Dates: start: 20050203
  7. TERBINAFINE HCL [Concomitant]
     Dates: start: 20050622

REACTIONS (5)
  - FATIGUE [None]
  - HYPONATRAEMIA [None]
  - LEUKOPENIA [None]
  - NEUTROPENIA [None]
  - PYREXIA [None]
